FAERS Safety Report 4279452-6 (Version None)
Quarter: 2004Q1

REPORT INFORMATION
  Report Type: 
  Country: None (occurrence: None)
  Receive Date: 20040126
  Receipt Date: 20040126
  Transmission Date: 20041129
  Serious: Yes (Disabling)
  Sender: FDA-Public Use
  Company Number: None

PATIENT
  Age: 25 Year
  Sex: Female
  Weight: 90.7194 kg

DRUGS (1)
  1. ZOLOFT [Suspect]
     Indication: DEPRESSION
     Dosage: 50 MG ONCE DAILY ORAL
     Route: 048
     Dates: start: 19980101, end: 20040101

REACTIONS (20)
  - ABDOMINAL PAIN UPPER [None]
  - ANXIETY [None]
  - BREAST PAIN [None]
  - CARDIAC DISORDER [None]
  - CHEST PAIN [None]
  - CIRCULATORY COLLAPSE [None]
  - COLD SWEAT [None]
  - DEAFNESS TRANSITORY [None]
  - FEAR [None]
  - HALLUCINATION [None]
  - HEADACHE [None]
  - HOT FLUSH [None]
  - INSOMNIA [None]
  - LIMITED SYMPTOM PANIC ATTACK [None]
  - NAUSEA [None]
  - NERVOUS SYSTEM DISORDER [None]
  - PALPITATIONS [None]
  - PARAESTHESIA [None]
  - TINNITUS [None]
  - VERTIGO [None]
